FAERS Safety Report 20349974 (Version 2)
Quarter: 2022Q1

REPORT INFORMATION
  Report Type: Spontaneous
  Country: NZ (occurrence: NZ)
  Receive Date: 20220119
  Receipt Date: 20220321
  Transmission Date: 20220423
  Serious: Yes (Death, Other)
  Sender: FDA-Public Use
  Company Number: NZ-MYLANLABS-2022M1003779

PATIENT
  Age: 58 Year
  Sex: Male

DRUGS (30)
  1. CLOZARIL [Suspect]
     Active Substance: CLOZAPINE
     Indication: Schizophrenia
     Dosage: UNK
     Route: 048
     Dates: start: 19910101
  2. CLOZARIL [Suspect]
     Active Substance: CLOZAPINE
     Indication: Antipsychotic therapy
     Dosage: 700 MILLIGRAM, QD, (7 AT BEDTIME)
     Route: 048
     Dates: start: 20191004, end: 20220109
  3. CILAZAPRIL ANHYDROUS [Concomitant]
     Active Substance: CILAZAPRIL ANHYDROUS
     Dosage: 2.5 MILLIGRAM, QD (AT BREAKFAST)
     Route: 048
     Dates: start: 20210708
  4. DOXAZOSIN [Concomitant]
     Active Substance: DOXAZOSIN MESYLATE
     Dosage: 2 MILLIGRAM, QD (AT BEDTIME)
     Route: 048
     Dates: start: 20210409
  5. CHOLECALCIFEROL [Concomitant]
     Active Substance: CHOLECALCIFEROL
     Indication: Bone disorder
     Dosage: 1.25 MILLIGRAM, MONTHLY, AT BREAKFAST
     Route: 048
     Dates: start: 20210212
  6. AMISULPRIDE [Concomitant]
     Active Substance: AMISULPRIDE
     Indication: Psychotic disorder
     Dosage: 200 MILLIGRAM, QD, AT BEDTIME
     Route: 048
     Dates: start: 20201209
  7. ATORVASTATIN [Concomitant]
     Active Substance: ATORVASTATIN
     Indication: Dyslipidaemia
     Dosage: 20 MILLIGRAM, QD, AT BREAKFAST
     Route: 048
     Dates: start: 20191004
  8. METFORMIN HYDROCHLORIDE [Concomitant]
     Active Substance: METFORMIN HYDROCHLORIDE
     Indication: Diabetes mellitus
     Dosage: 500 MILLIGRAM, TID, 2 AT BREAKFAST AND 1 AT TEA
     Route: 048
     Dates: start: 20191004
  9. FINASTERIDE [Concomitant]
     Active Substance: FINASTERIDE
     Indication: Benign prostatic hyperplasia
     Dosage: 5 MILLIGRAM, QD
     Route: 048
     Dates: start: 20191004
  10. AMISULPRIDE [Concomitant]
     Active Substance: AMISULPRIDE
     Indication: Psychotic disorder
     Dosage: 400 MILLIGRAM
     Dates: start: 20191004
  11. AMISULPRIDE [Concomitant]
     Active Substance: AMISULPRIDE
     Dosage: 400 MILLIGRAM, QD, BREAKFAST
     Dates: start: 20201209
  12. CLONAZEPAM [Concomitant]
     Active Substance: CLONAZEPAM
     Indication: Anxiety
     Dosage: 2 MILLIGRAM, QD, AT TEA TIME
     Route: 048
     Dates: start: 20191004
  13. CLONAZEPAM [Concomitant]
     Active Substance: CLONAZEPAM
     Indication: Agitation
  14. LEVOTHYROXINE [Concomitant]
     Active Substance: LEVOTHYROXINE
     Indication: Hypothyroidism
     Dosage: 50 MICROGRAM, QD, AT BREAKFAST
     Route: 048
     Dates: start: 20191004
  15. OMEPRAZOLE [Concomitant]
     Active Substance: OMEPRAZOLE
     Indication: Gastrooesophageal reflux disease
     Dosage: 20 MILLIGRAM, QD, AT BREAKFAST
     Route: 048
     Dates: start: 20191004
  16. ASPIRIN [Concomitant]
     Active Substance: ASPIRIN
     Indication: Disease risk factor
     Dosage: 100 MILLIGRAM, QD, AT BREAKFAST
     Route: 048
     Dates: start: 20191004
  17. DOCUSATE SODIUM\SENNOSIDE B [Concomitant]
     Active Substance: DOCUSATE SODIUM\SENNOSIDE B
     Indication: Constipation
     Dosage: UNK UNK, BID
     Route: 048
     Dates: start: 20191004
  18. DOCUSATE SODIUM\SENNOSIDE B [Concomitant]
     Active Substance: DOCUSATE SODIUM\SENNOSIDE B
     Dosage: UNK UNK, QD
     Route: 048
     Dates: start: 20200120
  19. DOCUSATE SODIUM\SENNOSIDE B [Concomitant]
     Active Substance: DOCUSATE SODIUM\SENNOSIDE B
     Dosage: UNK UNK, BID
     Route: 048
     Dates: start: 20200127
  20. DICLOFENAC SODIUM [Concomitant]
     Active Substance: DICLOFENAC SODIUM
     Indication: Pain in extremity
     Dosage: UNK UNK, BID (RUB SMALL AMOUNT GEL INTO LOWER LEG CALF)
     Route: 061
     Dates: start: 20200916
  21. POLYETHYLENE GLYCOL 3350\POTASSIUM CHLORIDE\SODIUM BICARBONATE\SODIUM [Concomitant]
     Active Substance: POLYETHYLENE GLYCOL 3350\POTASSIUM CHLORIDE\SODIUM BICARBONATE\SODIUM CHLORIDE
     Indication: Constipation
     Dosage: UNK, QID, FREQUENCY INCREASES AS RISK
     Route: 048
     Dates: start: 20191004
  22. MENTHOL;METHYL SALICYLATE [Concomitant]
     Indication: Constipation
     Dosage: UNK, BID
     Route: 061
     Dates: start: 20211124
  23. ACETAMINOPHEN [Concomitant]
     Active Substance: ACETAMINOPHEN
     Indication: Pain
     Dosage: UNK, QID
     Route: 048
     Dates: start: 20200227
  24. ACETAMINOPHEN [Concomitant]
     Active Substance: ACETAMINOPHEN
     Indication: Pyrexia
  25. CLONAZEPAM [Concomitant]
     Active Substance: CLONAZEPAM
     Indication: Anxiety
     Dosage: UNK, Q2H (0.5 MILLIGRAM TO 2-MILLIGRAM)
     Route: 048
     Dates: start: 20191004
  26. CLONAZEPAM [Concomitant]
     Active Substance: CLONAZEPAM
     Indication: Agitation
  27. BENZTROPINE [Concomitant]
     Active Substance: BENZTROPINE
     Indication: Adverse drug reaction
     Dosage: 2 MILLIGRAM, Q8H
     Route: 048
     Dates: start: 20191004
  28. HALOPERIDOL [Concomitant]
     Active Substance: HALOPERIDOL
     Indication: Psychotic disorder
     Dosage: 1.5 MILLIGRAM, Q4H
     Route: 048
     Dates: start: 20191004
  29. IBUPROFEN [Concomitant]
     Active Substance: IBUPROFEN
     Indication: Pain
     Dosage: UNK, Q4H (200-400 MG)
     Route: 048
     Dates: start: 20191004
  30. ATROPINE SULFATE [Concomitant]
     Active Substance: ATROPINE SULFATE
     Indication: Salivary hypersecretion
     Dosage: UNK, Q6H
     Route: 048
     Dates: start: 20191004

REACTIONS (1)
  - Death [Fatal]

NARRATIVE: CASE EVENT DATE: 20220109
